FAERS Safety Report 16333310 (Version 1)
Quarter: 2019Q2

REPORT INFORMATION
  Report Type: Spontaneous
  Country: BE (occurrence: BE)
  Receive Date: 20190520
  Receipt Date: 20190520
  Transmission Date: 20190711
  Serious: Yes (Other)
  Sender: FDA-Public Use
  Company Number: PHHY2019BE114257

PATIENT
  Age: 90 Year
  Sex: Female

DRUGS (2)
  1. GLIVEC [Suspect]
     Active Substance: IMATINIB MESYLATE
     Dosage: 200 MG, UNK
     Route: 065
  2. GLIVEC [Suspect]
     Active Substance: IMATINIB MESYLATE
     Indication: MALIGNANT MELANOMA
     Dosage: 400 MG, UNK
     Route: 065

REACTIONS (4)
  - Face oedema [Unknown]
  - Renal impairment [Recovering/Resolving]
  - Product use in unapproved indication [Unknown]
  - Oedema peripheral [Unknown]
